FAERS Safety Report 15813475 (Version 1)
Quarter: 2019Q1

REPORT INFORMATION
  Report Type: Spontaneous
  Country: US (occurrence: US)
  Receive Date: 20190111
  Receipt Date: 20190111
  Transmission Date: 20190417
  Serious: Yes (Hospitalization)
  Sender: FDA-Public Use
  Company Number: None

PATIENT
  Sex: Female

DRUGS (12)
  1. IBUPROFEN. [Concomitant]
     Active Substance: IBUPROFEN
  2. TRAMADOL. [Concomitant]
     Active Substance: TRAMADOL
  3. EXCEDRIN [Concomitant]
     Active Substance: ACETAMINOPHEN\ASPIRIN\CAFFEINE
  4. FOLIC ACID. [Concomitant]
     Active Substance: FOLIC ACID
  5. MULTIVITAMIN [Concomitant]
     Active Substance: VITAMINS
  6. NYSTOP [Concomitant]
     Active Substance: NYSTATIN
  7. METHOTREXATE. [Concomitant]
     Active Substance: METHOTREXATE
  8. VITAMIN D [Concomitant]
     Active Substance: CHOLECALCIFEROL
  9. HUMIRA [Suspect]
     Active Substance: ADALIMUMAB
     Indication: RHEUMATOID ARTHRITIS
     Dosage: ?          OTHER FREQUENCY:EVERY 2 WEEKS;?
     Route: 058
     Dates: start: 20180626
  10. AMLODIPINE [Concomitant]
     Active Substance: AMLODIPINE BESYLATE
  11. MUPIROCIN. [Concomitant]
     Active Substance: MUPIROCIN
  12. CEPHALEXIN. [Concomitant]
     Active Substance: CEPHALEXIN

REACTIONS (2)
  - Therapy cessation [None]
  - Surgery [None]
